FAERS Safety Report 4485144-0 (Version None)
Quarter: 2004Q4

REPORT INFORMATION
  Report Type: 
  Country: None (occurrence: None)
  Receive Date: 20041026
  Receipt Date: 20031210
  Transmission Date: 20050328
  Serious: No
  Sender: FDA-Public Use
  Company Number: US-BRISTOL-MYERS SQUIBB COMPANY-12454997

PATIENT
  Age: 28 Year
  Sex: Female
  Weight: 108 kg

DRUGS (1)
  1. GLUCOPHAGE XR [Suspect]
     Route: 048

REACTIONS (1)
  - BLOOD INSULIN INCREASED [None]
